FAERS Safety Report 8139314-0 (Version None)
Quarter: 2012Q1

REPORT INFORMATION
  Report Type: 
  Country: None (occurrence: None)
  Receive Date: 20120215
  Receipt Date: 20110303
  Transmission Date: 20120608
  Serious: Yes (Hospitalization)
  Sender: FDA-Public Use
  Company Number: PHHY2011US28750

PATIENT
  Age: 40 Year
  Sex: Female
  Weight: 49 kg

DRUGS (6)
  1. ZANAFLEX [Interacting]
     Indication: MUSCLE SPASMS
     Dosage: UNK
  2. TRAZODONE HCL [Concomitant]
     Dosage: UNK
  3. PAXIL [Concomitant]
     Dosage: UNK
  4. CIPROFLOXACIN [Suspect]
     Dosage: UNK
     Dates: start: 20110202
  5. REBIF [Concomitant]
     Dosage: UNK
     Dates: start: 20031201
  6. BACLOFEN [Concomitant]
     Dosage: UNK

REACTIONS (9)
  - DISORIENTATION [None]
  - HEART RATE INCREASED [None]
  - BLOOD PRESSURE DECREASED [None]
  - DRUG INTERACTION [None]
  - CONSCIOUSNESS FLUCTUATING [None]
  - SUTURE RELATED COMPLICATION [None]
  - GAIT DISTURBANCE [None]
  - SEPSIS [None]
  - HYPOTHYROIDISM [None]
